FAERS Safety Report 6990387-8 (Version None)
Quarter: 2010Q3

REPORT INFORMATION
  Report Type: 
  Country: None (occurrence: None)
  Receive Date: 20100916
  Receipt Date: 20100616
  Transmission Date: 20110219
  Serious: Yes (Death, Other)
  Sender: FDA-Public Use
  Company Number: IT-PFIZER INC-2010034062

PATIENT
  Age: 71 Year
  Sex: Male

DRUGS (2)
  1. LYRICA [Suspect]
     Indication: DYSAESTHESIA
     Dosage: 450 MG DAILY
     Route: 048
  2. LYRICA [Suspect]
     Dosage: 600 MG DAILY

REACTIONS (7)
  - BLOOD GLUCOSE INCREASED [None]
  - BRONCHOPNEUMONIA [None]
  - DELIRIUM [None]
  - DISEASE PROGRESSION [None]
  - ILL-DEFINED DISORDER [None]
  - RESTLESSNESS [None]
  - WITHDRAWAL SYNDROME [None]
